FAERS Safety Report 9105260 (Version 1)
Quarter: 2013Q1

REPORT INFORMATION
  Report Type: Report from Study
  Country: BE (occurrence: BE)
  Receive Date: 20130220
  Receipt Date: 20130220
  Transmission Date: 20140127
  Serious: Yes (Hospitalization)
  Sender: FDA-Public Use
  Company Number: BE-ASTRAZENECA-2013SE10328

PATIENT
  Age: 23964 Day
  Sex: Female

DRUGS (9)
  1. AZD6140 [Suspect]
     Indication: CORONARY ARTERY DISEASE
     Route: 048
     Dates: start: 20110817, end: 20130121
  2. ASA [Concomitant]
     Route: 048
  3. EMCONCOR [Concomitant]
     Indication: HYPERTENSION
     Route: 048
     Dates: end: 20120801
  4. EMCONCOR [Concomitant]
     Indication: PROPHYLAXIS
     Route: 048
     Dates: end: 20120801
  5. EMCONCOR [Concomitant]
     Indication: HYPERTENSION
     Route: 048
     Dates: start: 20120802
  6. EMCONCOR [Concomitant]
     Indication: PROPHYLAXIS
     Route: 048
     Dates: start: 20120802
  7. LEXOTAN [Concomitant]
     Indication: INSOMNIA
     Route: 048
  8. CRESTOR [Concomitant]
     Indication: PROPHYLAXIS
     Route: 048
  9. CO-APROVEL [Concomitant]
     Indication: PROPHYLAXIS
     Route: 048

REACTIONS (1)
  - Angina pectoris [Recovered/Resolved]
